FAERS Safety Report 14205709 (Version 2)
Quarter: 2017Q4

REPORT INFORMATION
  Report Type: Spontaneous
  Country: US (occurrence: US)
  Receive Date: 20171120
  Receipt Date: 20171214
  Transmission Date: 20180321
  Serious: Yes (Death, Other)
  Sender: FDA-Public Use
  Company Number: US-IMPAX LABORATORIES, INC-2017-IPXL-03264

PATIENT
  Age: 83 Year
  Sex: Male
  Weight: 72 kg

DRUGS (2)
  1. PROCARDIA [Concomitant]
     Active Substance: NIFEDIPINE
     Indication: HYPERTENSION
     Dosage: UNK
     Route: 048
  2. RYTARY [Suspect]
     Active Substance: CARBIDOPA\LEVODOPA
     Indication: PARKINSON^S DISEASE
     Dosage: 48.75/195 MG, 1 CAPSULE, TID 61.25/245MG, 1 CAPSULE, TID EVERY 8 HOURS
     Route: 048
     Dates: start: 201705, end: 201708

REACTIONS (4)
  - Haemorrhage intracranial [Fatal]
  - Disorientation [Recovered/Resolved]
  - Balance disorder [Unknown]
  - Fall [Unknown]

NARRATIVE: CASE EVENT DATE: 20170729
